FAERS Safety Report 5146803-X (Version None)
Quarter: 2006Q4

REPORT INFORMATION
  Report Type: 
  Country: None (occurrence: None)
  Receive Date: 20061102
  Receipt Date: 20061018
  Transmission Date: 20070319
  Serious: Yes (Hospitalization)
  Sender: FDA-Public Use
  Company Number: 23100348

PATIENT
  Age: 21 Year
  Sex: Male

DRUGS (1)
  1. ARGATROBAN [Suspect]
     Indication: HEPARIN-INDUCED THROMBOCYTOPENIA
     Dosage: 5 MCG/KG/MIN CONT IV
     Route: 042
     Dates: start: 20061008, end: 20061009

REACTIONS (20)
  - ACTIVATED PARTIAL THROMBOPLASTIN TIME PROLONGED [None]
  - ATELECTASIS [None]
  - BLOOD PRESSURE DECREASED [None]
  - BRONCHIAL HAEMORRHAGE [None]
  - CATHETER SITE HAEMORRHAGE [None]
  - CHEST X-RAY ABNORMAL [None]
  - COAGULOPATHY [None]
  - DEEP VEIN THROMBOSIS [None]
  - EPISTAXIS [None]
  - GASTROINTESTINAL HAEMORRHAGE [None]
  - GASTROINTESTINAL MUCOSAL DISORDER [None]
  - HAEMOGLOBIN DECREASED [None]
  - HEART RATE INCREASED [None]
  - INTERNATIONAL NORMALISED RATIO INCREASED [None]
  - OVERDOSE [None]
  - OXYGEN SATURATION DECREASED [None]
  - PHARYNGEAL HAEMORRHAGE [None]
  - RESPIRATORY DISTRESS [None]
  - TRACHEAL DEVIATION [None]
  - VARICES OESOPHAGEAL [None]
